FAERS Safety Report 8000113-1 (Version None)
Quarter: 2011Q4

REPORT INFORMATION
  Report Type: 
  Country: None (occurrence: None)
  Receive Date: 20111220
  Receipt Date: 20111220
  Transmission Date: 20120403
  Serious: Yes (Other)
  Sender: FDA-Public Use
  Company Number: None

PATIENT
  Age: 84 Year
  Sex: Female
  Weight: 54.4316 kg

DRUGS (2)
  1. TRAVATAN Z [Suspect]
  2. BRIMONIDINE TARTRATE [Suspect]

REACTIONS (3)
  - DIPLOPIA [None]
  - VISUAL IMPAIRMENT [None]
  - DRUG INTERACTION [None]
